FAERS Safety Report 7941264-7 (Version None)
Quarter: 2011Q4

REPORT INFORMATION
  Report Type: 
  Country: None (occurrence: None)
  Receive Date: 20111128
  Receipt Date: 20111118
  Transmission Date: 20120403
  Serious: Yes (Hospitalization)
  Sender: FDA-Public Use
  Company Number: US-JNJFOC-20111109017

PATIENT
  Sex: Male
  Weight: 43.09 kg

DRUGS (1)
  1. TOPAMAX [Suspect]
     Indication: PRODUCT USED FOR UNKNOWN INDICATION
     Route: 048
     Dates: start: 20110101

REACTIONS (4)
  - SCHIZOPHRENIA [None]
  - INTENTIONAL DRUG MISUSE [None]
  - BIPOLAR DISORDER [None]
  - ATTENTION DEFICIT/HYPERACTIVITY DISORDER [None]
